FAERS Safety Report 12391383 (Version 1)
Quarter: 2016Q2

REPORT INFORMATION
  Report Type: Spontaneous
  Country: NO (occurrence: NO)
  Receive Date: 20160520
  Receipt Date: 20160520
  Transmission Date: 20160815
  Serious: Yes (Life-Threatening, Hospitalization)
  Sender: FDA-Public Use
  Company Number: NO-ASTRAZENECA-2016SE52355

PATIENT
  Age: 41 Year
  Sex: Female

DRUGS (6)
  1. DEPO-PROVERA [Concomitant]
     Active Substance: MEDROXYPROGESTERONE ACETATE
  2. CYANOCOBALAMIN. [Concomitant]
     Active Substance: CYANOCOBALAMIN
  3. AERIUS [Concomitant]
     Active Substance: DESLORATADINE
  4. LEVAXIN [Concomitant]
     Active Substance: LEVOTHYROXINE SODIUM
  5. HUMALOG [Concomitant]
     Active Substance: INSULIN LISPRO
     Route: 051
  6. FORXIGA [Suspect]
     Active Substance: DAPAGLIFLOZIN
     Indication: TYPE 1 DIABETES MELLITUS
     Route: 048
     Dates: start: 2015, end: 20160422

REACTIONS (5)
  - Appendicitis [Unknown]
  - Intentional product misuse [Unknown]
  - Post procedural sepsis [Unknown]
  - Product use issue [Recovered/Resolved]
  - Ketoacidosis [Recovered/Resolved]

NARRATIVE: CASE EVENT DATE: 2015
